FAERS Safety Report 11675428 (Version 1)
Quarter: 2015Q4

REPORT INFORMATION
  Report Type: Spontaneous
  Country: US (occurrence: US)
  Receive Date: 20151027
  Receipt Date: 20151027
  Transmission Date: 20160304
  Serious: No
  Sender: FDA-Public Use
  Company Number: US-ELI_LILLY_AND_COMPANY-US201009000046

PATIENT
  Age: 88 Year
  Sex: Female

DRUGS (1)
  1. FORTEO [Suspect]
     Active Substance: TERIPARATIDE
     Indication: OSTEOPOROSIS
     Dosage: 20 UG, DAILY (1/D)
     Dates: start: 20100813, end: 20100904

REACTIONS (5)
  - Limb discomfort [Unknown]
  - Injection site bruising [Unknown]
  - Gastric dilatation [Not Recovered/Not Resolved]
  - Injection site haemorrhage [Unknown]
  - Fear [Unknown]

NARRATIVE: CASE EVENT DATE: 20100816
